FAERS Safety Report 19440435 (Version 1)
Quarter: 2021Q2

REPORT INFORMATION
  Report Type: Spontaneous
  Country: US (occurrence: US)
  Receive Date: 20210621
  Receipt Date: 20210621
  Transmission Date: 20210717
  Serious: No
  Sender: FDA-Public Use
  Company Number: US-ELI_LILLY_AND_COMPANY-US202106007424

PATIENT
  Sex: Female
  Weight: 60 kg

DRUGS (2)
  1. TALTZ [Suspect]
     Active Substance: IXEKIZUMAB
     Indication: PRODUCT USED FOR UNKNOWN INDICATION
     Dosage: 40 MG, OTHER
     Route: 058
     Dates: start: 202106
  2. TALTZ [Suspect]
     Active Substance: IXEKIZUMAB
     Dosage: 20 MG, OTHER (EVERY 4 WEEKS)
     Route: 058

REACTIONS (2)
  - Prescribed underdose [Unknown]
  - Product prescribing error [Unknown]
